FAERS Safety Report 4369577-9 (Version None)
Quarter: 2004Q2

REPORT INFORMATION
  Report Type: 
  Country: None (occurrence: None)
  Receive Date: 20040603
  Receipt Date: 20040525
  Transmission Date: 20050107
  Serious: Yes (Other)
  Sender: FDA-Public Use
  Company Number: PHBS2004MA06997

PATIENT
  Age: 56 Year
  Sex: Female
  Weight: 107 kg

DRUGS (3)
  1. ZELMAC [Suspect]
     Indication: IRRITABLE BOWEL SYNDROME
     Dosage: 12 MG/DAY
     Route: 048
     Dates: start: 20040506, end: 20040510
  2. AMLOR [Concomitant]
     Indication: HYPERTENSION
  3. INSULIN [Concomitant]
     Indication: DIABETES MELLITUS

REACTIONS (4)
  - FATIGUE [None]
  - LYMPHOEDEMA [None]
  - MEMORY IMPAIRMENT [None]
  - TREMOR [None]
